FAERS Safety Report 9470228 (Version 1)
Quarter: 2013Q3

REPORT INFORMATION
  Report Type: Spontaneous
  Country: US (occurrence: US)
  Receive Date: 20130822
  Receipt Date: 20130822
  Transmission Date: 20140515
  Serious: No
  Sender: FDA-Public Use
  Company Number: US-SANOFI-AVENTIS-2013SA032799

PATIENT
  Age: 81 Year
  Sex: Female
  Weight: 53 kg

DRUGS (5)
  1. MULTAQ [Suspect]
     Indication: CARDIOVERSION
     Route: 048
     Dates: start: 201012
  2. COUMADIN [Concomitant]
     Indication: CARDIAC DISORDER
     Dates: start: 201304
  3. PRADAXA [Concomitant]
  4. ASPIRIN [Concomitant]
  5. LEVOTHYROXINE [Concomitant]
     Indication: THYROID DISORDER
     Dates: start: 1995

REACTIONS (2)
  - Erythema [Not Recovered/Not Resolved]
  - Cough [Not Recovered/Not Resolved]
